FAERS Safety Report 13201408 (Version 1)
Quarter: 2017Q1

REPORT INFORMATION
  Report Type: Spontaneous
  Country: US (occurrence: US)
  Receive Date: 20170209
  Receipt Date: 20170209
  Transmission Date: 20170428
  Serious: No
  Sender: FDA-Public Use
  Company Number: US-009507513-1701USA009905

PATIENT
  Sex: Female

DRUGS (1)
  1. JANUMET XR [Suspect]
     Active Substance: METFORMIN HYDROCHLORIDE\SITAGLIPTIN PHOSPHATE
     Dosage: 0.5 TABLET, UNK
     Route: 048

REACTIONS (3)
  - Feeling of relaxation [Unknown]
  - Wrong technique in product usage process [Unknown]
  - Intentional product misuse [Unknown]
